FAERS Safety Report 13361743 (Version 1)
Quarter: 2017Q1

REPORT INFORMATION
  Report Type: Report from Study
  Country: IQ (occurrence: IQ)
  Receive Date: 20170323
  Receipt Date: 20170323
  Transmission Date: 20170429
  Serious: Yes (Disabling, Other)
  Sender: FDA-Public Use
  Company Number: IQ-ROCHE-1909449

PATIENT
  Age: 59 Year
  Sex: Female
  Weight: 57 kg

DRUGS (1)
  1. HERCEPTIN [Suspect]
     Active Substance: TRASTUZUMAB
     Indication: BREAST CANCER
     Dosage: 4 MG/KG 90 MINS FOR 12 WEEKS EVERY 3 WEEKS ONE DOSE
     Route: 042
     Dates: start: 20160204, end: 20160522

REACTIONS (5)
  - Infertility [Not Recovered/Not Resolved]
  - Memory impairment [Recovered/Resolved]
  - Disturbance in attention [Recovered/Resolved]
  - Pyrexia [Not Recovered/Not Resolved]
  - Cardiac disorder [Recovered/Resolved]
